FAERS Safety Report 6626987-4 (Version None)
Quarter: 2010Q1

REPORT INFORMATION
  Report Type: 
  Country: None (occurrence: None)
  Receive Date: 20100311
  Receipt Date: 20100302
  Transmission Date: 20100710
  Serious: Yes (Hospitalization)
  Sender: FDA-Public Use
  Company Number: CA-JNJFOC-20090707051

PATIENT
  Sex: Male
  Weight: 89 kg

DRUGS (5)
  1. REMICADE [Suspect]
     Indication: CROHN'S DISEASE
     Route: 042
  2. REMICADE [Suspect]
     Route: 042
  3. PROZAC [Concomitant]
     Indication: STRESS
  4. CLONAZEPAM [Concomitant]
     Indication: STRESS
  5. PREDNISONE [Concomitant]
     Indication: CROHN'S DISEASE

REACTIONS (6)
  - ABDOMINAL PAIN [None]
  - CHEST PAIN [None]
  - INFUSION RELATED REACTION [None]
  - INSOMNIA [None]
  - NAUSEA [None]
  - STRESS [None]
